FAERS Safety Report 7374724-0 (Version None)
Quarter: 2011Q1

REPORT INFORMATION
  Report Type: 
  Country: None (occurrence: None)
  Receive Date: 20110325
  Receipt Date: 20100901
  Transmission Date: 20110831
  Serious: Yes (Hospitalization, Other)
  Sender: FDA-Public Use
  Company Number: US-MYLANLABS-2010S1016286

PATIENT
  Age: 80 Year
  Sex: Male
  Weight: 78.93 kg

DRUGS (18)
  1. IMDUR [Concomitant]
  2. FOLIC ACID [Concomitant]
  3. TRAZODONE [Concomitant]
     Indication: INSOMNIA
     Dates: start: 20090101
  4. ATENOLOL [Concomitant]
     Indication: HYPERTENSION
  5. PLAVIX [Concomitant]
  6. VITAMIN B1 TAB [Concomitant]
  7. ZETIA [Concomitant]
     Indication: BLOOD CHOLESTEROL INCREASED
  8. PERCOCET [Concomitant]
     Indication: BREAKTHROUGH PAIN
     Dosage: 5MG/325MG
  9. COZAAR [Concomitant]
     Indication: HYPERTENSION
  10. ZOCOR [Concomitant]
     Indication: BLOOD CHOLESTEROL INCREASED
  11. FENTANYL-100 [Suspect]
     Indication: BACK PAIN
     Dosage: CHANGED Q. 72 HOURS.
     Route: 062
  12. ZOLOFT [Concomitant]
     Indication: DEPRESSION
  13. FUROSEMIDE [Concomitant]
     Indication: FLUID RETENTION
  14. NEURONTIN [Concomitant]
     Indication: NEUROPATHY PERIPHERAL
     Dosage: USING 400MG X 5 DAILY
  15. MUCINEX [Concomitant]
     Indication: PULMONARY CONGESTION
  16. PANTOPRAZOLE [Concomitant]
     Indication: GASTROOESOPHAGEAL REFLUX DISEASE
  17. CENTRUM SILVER [Concomitant]
  18. ASPIRIN [Concomitant]

REACTIONS (2)
  - DRUG WITHDRAWAL SYNDROME [None]
  - BACK PAIN [None]
